FAERS Safety Report 24738243 (Version 1)
Quarter: 2024Q4

REPORT INFORMATION
  Report Type: Spontaneous
  Country: IE (occurrence: IE)
  Receive Date: 20241216
  Receipt Date: 20241216
  Transmission Date: 20250114
  Serious: Yes (Death, Hospitalization, Other)
  Sender: ASTELLAS
  Company Number: IE-ASTELLAS-2017US023638

PATIENT
  Age: 28 Year
  Sex: Male

DRUGS (1)
  1. TACROLIMUS [Suspect]
     Active Substance: TACROLIMUS
     Indication: Liver transplant
     Route: 065

REACTIONS (4)
  - Respiratory tract infection [Fatal]
  - Encephalitis autoimmune [Unknown]
  - Status epilepticus [Recovering/Resolving]
  - Meningitis [Unknown]
